FAERS Safety Report 13601771 (Version 2)
Quarter: 2018Q2

REPORT INFORMATION
  Report Type: Spontaneous
  Country: US (occurrence: US)
  Receive Date: 20170601
  Receipt Date: 20180601
  Transmission Date: 20180711
  Serious: No
  Sender: FDA-Public Use
  Company Number: US-BAUSCH-BL-2016-012893

PATIENT
  Age: 87 Year
  Sex: Female

DRUGS (2)
  1. ELIDEL [Suspect]
     Active Substance: PIMECROLIMUS
     Indication: BLISTER
     Route: 061
     Dates: start: 20160405, end: 20160405
  2. ELIDEL [Suspect]
     Active Substance: PIMECROLIMUS
     Indication: THERAPEUTIC SKIN CARE TOPICAL

REACTIONS (4)
  - Drug ineffective for unapproved indication [Unknown]
  - Off label use [Recovered/Resolved]
  - Sneezing [Recovered/Resolved]
  - Rhinorrhoea [Recovered/Resolved]

NARRATIVE: CASE EVENT DATE: 20160405
